FAERS Safety Report 20657976 (Version 18)
Quarter: 2024Q4

REPORT INFORMATION
  Report Type: Spontaneous
  Country: CA (occurrence: CA)
  Receive Date: 20220331
  Receipt Date: 20241207
  Transmission Date: 20250115
  Serious: Yes (Other)
  Sender: CELLTRION
  Company Number: CA-CELLTRION INC.-2019CA023364

PATIENT

DRUGS (46)
  1. INFLECTRA [Suspect]
     Active Substance: INFLIXIMAB-DYYB
     Indication: Crohn^s disease
     Dosage: 200 MG, EVERY 6 WEEKS
     Route: 042
     Dates: start: 20190803
  2. INFLECTRA [Suspect]
     Active Substance: INFLIXIMAB-DYYB
     Indication: Ankylosing spondylitis
     Dosage: 200 MG, EVERY 6 WEEKS
     Route: 042
     Dates: start: 20190803, end: 20200806
  3. INFLECTRA [Suspect]
     Active Substance: INFLIXIMAB-DYYB
     Dosage: 200 MG, AFTER 11 WEEKS (EVERY 6 WEEKS)
     Route: 042
     Dates: start: 20191019
  4. INFLECTRA [Suspect]
     Active Substance: INFLIXIMAB-DYYB
     Dosage: 200 MG, EVERY 6 WEEKS
     Route: 042
     Dates: start: 20200107
  5. INFLECTRA [Suspect]
     Active Substance: INFLIXIMAB-DYYB
     Dosage: 200 MG, AFTER 9 WEEKS AND 4 DAYS (EVERY 6 WEEKS)
     Route: 042
     Dates: start: 20200314
  6. INFLECTRA [Suspect]
     Active Substance: INFLIXIMAB-DYYB
     Dosage: 200 MG, AFTER 4 WEEKS AND 2 DAYS (EVERY 6 WEEKS)
     Route: 042
     Dates: start: 20200413
  7. INFLECTRA [Suspect]
     Active Substance: INFLIXIMAB-DYYB
     Dosage: 200 MG, AFTER 10 WEEKS AND 3 DAYS (EVERY 6 WEEKS)
     Route: 042
     Dates: start: 20200625
  8. INFLECTRA [Suspect]
     Active Substance: INFLIXIMAB-DYYB
     Dosage: 200 MG, EVERY 6 WEEKS
     Route: 042
     Dates: start: 20200806, end: 20200806
  9. INFLECTRA [Suspect]
     Active Substance: INFLIXIMAB-DYYB
     Dosage: 300 MG, EVERY 8 WEEKS
     Route: 042
     Dates: start: 20201019, end: 20220210
  10. INFLECTRA [Suspect]
     Active Substance: INFLIXIMAB-DYYB
     Dosage: 300 MG, AFTER 10 WEEKS AND 4 DAYS (EVERY 8 WEEKS)
     Route: 042
     Dates: start: 20201019, end: 20201019
  11. INFLECTRA [Suspect]
     Active Substance: INFLIXIMAB-DYYB
     Dosage: 300 MG, AFTER 10 WEEKS AND 4 DAYS (EVERY 8 WEEKS)
     Route: 042
     Dates: start: 20201019, end: 20201019
  12. INFLECTRA [Suspect]
     Active Substance: INFLIXIMAB-DYYB
     Dosage: 300 MG, AFTER 10 WEEKS AND 4 DAYS (EVERY 8 WEEKS)
     Route: 042
     Dates: start: 20201019, end: 20201019
  13. INFLECTRA [Suspect]
     Active Substance: INFLIXIMAB-DYYB
     Dosage: 300 MG, AFTER 6 WEEKS AND 1 DAYS (EVERY 8 WEEKS)
     Route: 042
     Dates: start: 20201201
  14. INFLECTRA [Suspect]
     Active Substance: INFLIXIMAB-DYYB
     Dosage: 300 MG, EVERY 8 WEEKS
     Route: 042
     Dates: start: 20210127
  15. INFLECTRA [Suspect]
     Active Substance: INFLIXIMAB-DYYB
     Dosage: 300 MG, AFTER 10 WEEKS (EVERY 8 WEEKS)
     Route: 042
     Dates: start: 20210407
  16. INFLECTRA [Suspect]
     Active Substance: INFLIXIMAB-DYYB
     Dosage: 300 MG, EVERY 8 WEEKS
     Route: 042
     Dates: start: 20210602
  17. INFLECTRA [Suspect]
     Active Substance: INFLIXIMAB-DYYB
     Dosage: 300 MG, AFTER 10 WEEKS AND 1 DAY (EVERY 8 WEEKS)
     Route: 042
     Dates: start: 20210812
  18. INFLECTRA [Suspect]
     Active Substance: INFLIXIMAB-DYYB
     Dosage: 300 MG, EVERY 8 WEEKS
     Route: 042
     Dates: start: 20211005
  19. INFLECTRA [Suspect]
     Active Substance: INFLIXIMAB-DYYB
     Dosage: 300 MG, AFTER 10 WEEKS AND 4 DAY (EVERY 8 WEEKS)
     Route: 042
     Dates: start: 20211218
  20. INFLECTRA [Suspect]
     Active Substance: INFLIXIMAB-DYYB
     Dosage: 300 MG, EVERY 8 WEEKS
     Route: 042
     Dates: start: 20220210
  21. INFLECTRA [Suspect]
     Active Substance: INFLIXIMAB-DYYB
     Dosage: 300 MG, AFTER 7 WEEKS AND 6 DAY (EVERY 6 WEEKS)
     Route: 042
     Dates: start: 20220406
  22. INFLECTRA [Suspect]
     Active Substance: INFLIXIMAB-DYYB
     Dosage: 300 MG, AFTER 7 WEEKS AND 6 DAY (EVERY 6 WEEKS)
     Route: 042
     Dates: start: 20220406
  23. INFLECTRA [Suspect]
     Active Substance: INFLIXIMAB-DYYB
     Dosage: 300 MG, AFTER 7 WEEKS AND 6 DAY (EVERY 6 WEEKS)
     Route: 042
     Dates: start: 20220406, end: 20221209
  24. INFLECTRA [Suspect]
     Active Substance: INFLIXIMAB-DYYB
     Dosage: 300 MG, AFTER 9 WEEKS AND 1 DAY (EVERY 6 WEEKS)
     Route: 042
     Dates: start: 20220609
  25. INFLECTRA [Suspect]
     Active Substance: INFLIXIMAB-DYYB
     Dosage: 300 MG, EVERY 6 WEEKS
     Route: 042
     Dates: start: 20221013
  26. INFLECTRA [Suspect]
     Active Substance: INFLIXIMAB-DYYB
     Dosage: 300 MG, EVERY 6 WEEKS
     Route: 042
     Dates: start: 20221209
  27. INFLECTRA [Suspect]
     Active Substance: INFLIXIMAB-DYYB
     Dosage: 300 MG, AFTER 6 WEEKS (EVERY 4 WEEKS)
     Route: 042
     Dates: start: 20230120
  28. INFLECTRA [Suspect]
     Active Substance: INFLIXIMAB-DYYB
     Dosage: 300 MG, AFTER 7 WEEKS AND 2 DAYS (EVERY 4 WEEKS)
     Route: 042
     Dates: start: 20230313, end: 20230313
  29. INFLECTRA [Suspect]
     Active Substance: INFLIXIMAB-DYYB
     Dosage: 300 MG, AFTER 6 WEEKS (EVERY 4 WEEKS)
     Route: 042
     Dates: start: 20230424
  30. INFLECTRA [Suspect]
     Active Substance: INFLIXIMAB-DYYB
     Dosage: 300 MG, EVERY 4 WEEKS
     Route: 042
     Dates: start: 20230601
  31. INFLECTRA [Suspect]
     Active Substance: INFLIXIMAB-DYYB
     Dosage: 300 MG, AFTER 4 WEEKS
     Route: 042
     Dates: start: 20230630
  32. INFLECTRA [Suspect]
     Active Substance: INFLIXIMAB-DYYB
     Dosage: 300 MG, EVERY 4 WEEKS
     Route: 042
     Dates: start: 20230831
  33. INFLECTRA [Suspect]
     Active Substance: INFLIXIMAB-DYYB
     Dosage: 300 MG, AFTER 5 WEEKS AND 6 DAYS (EVERY 4 WEEKS)
     Route: 042
     Dates: start: 20231011
  34. INFLECTRA [Suspect]
     Active Substance: INFLIXIMAB-DYYB
     Dosage: 300 MG, EVERY 4 WEEKS
     Route: 042
     Dates: start: 20231107
  35. INFLECTRA [Suspect]
     Active Substance: INFLIXIMAB-DYYB
     Dosage: 300 MG, EVERY 4 WEEKS
     Route: 042
     Dates: start: 20231205
  36. INFLECTRA [Suspect]
     Active Substance: INFLIXIMAB-DYYB
     Dosage: 300 MG, AFTER 9 WEEKS AND 2 DAYS (EVERY 4 WEEKS)
     Route: 042
     Dates: start: 20240208
  37. INFLECTRA [Suspect]
     Active Substance: INFLIXIMAB-DYYB
     Dosage: 300 MG, AFTER 5 WEEKS AND 6 DAYS (PRESCRIBED EVERY 4 WEEKS)
     Route: 042
     Dates: start: 20240709
  38. INFLECTRA [Suspect]
     Active Substance: INFLIXIMAB-DYYB
     Dosage: 300 MG, EVERY 4 WEEKS
     Route: 042
     Dates: start: 20241005
  39. INFLECTRA [Suspect]
     Active Substance: INFLIXIMAB-DYYB
     Dosage: 300 MG, 7 WEEKS AND 5 DAYS, (EVERY 4 WEEKS)
     Route: 042
     Dates: start: 20241128
  40. AZATHIOPRINE [Concomitant]
     Active Substance: AZATHIOPRINE
     Dosage: 100 MG, DAILY
     Dates: start: 2020
  41. AZATHIOPRINE [Concomitant]
     Active Substance: AZATHIOPRINE
     Dosage: 100 MG, 1X/DAY
     Dates: start: 2020
  42. AZATHIOPRINE [Concomitant]
     Active Substance: AZATHIOPRINE
     Dosage: 100 MG, DAILY
     Dates: start: 20200910
  43. AZATHIOPRINE [Concomitant]
     Active Substance: AZATHIOPRINE
     Dosage: 100 MG
     Dates: start: 20201016
  44. AZATHIOPRINE [Concomitant]
     Active Substance: AZATHIOPRINE
     Dosage: 100 MG, 1X/DAY
     Dates: start: 2020
  45. AZATHIOPRINE [Concomitant]
     Active Substance: AZATHIOPRINE
     Dosage: 100 MG
     Dates: start: 20210111
  46. CLONAZEPAM [Concomitant]
     Active Substance: CLONAZEPAM
     Dosage: UNK

REACTIONS (20)
  - Inflammatory bowel disease [Recovered/Resolved]
  - Therapeutic response shortened [Unknown]
  - Drug specific antibody [Unknown]
  - Drug level below therapeutic [Unknown]
  - Condition aggravated [Recovered/Resolved]
  - Weight increased [Not Recovered/Not Resolved]
  - Anxiety [Unknown]
  - Depression [Unknown]
  - Malaise [Not Recovered/Not Resolved]
  - Stress [Unknown]
  - Spinal pain [Not Recovered/Not Resolved]
  - Pain [Unknown]
  - Blood pressure diastolic increased [Unknown]
  - Weight decreased [Recovered/Resolved]
  - Arthralgia [Not Recovered/Not Resolved]
  - Off label use [Unknown]
  - Off label use [Unknown]
  - Off label use [Unknown]
  - Intentional product use issue [Unknown]
  - Inappropriate schedule of product administration [Unknown]

NARRATIVE: CASE EVENT DATE: 20190803
